FAERS Safety Report 9219760 (Version 3)
Quarter: 2013Q3

REPORT INFORMATION
  Report Type: Report from Study
  Country: US (occurrence: US)
  Receive Date: 20130409
  Receipt Date: 20130817
  Transmission Date: 20140515
  Serious: Yes (Death, Hospitalization)
  Sender: FDA-Public Use
  Company Number: US-ROCHE-1208683

PATIENT
  Age: 72 Year
  Sex: Female
  Weight: 67.58 kg

DRUGS (5)
  1. TRASTUZUMAB [Suspect]
     Indication: OESOPHAGEAL ADENOCARCINOMA
     Route: 042
     Dates: start: 20130214
  2. TRASTUZUMAB [Suspect]
     Dosage: OVER 30-60 MIN ON DAY 8,15, 22, 29 AND 36
     Route: 042
  3. PACLITAXEL [Suspect]
     Indication: OESOPHAGEAL ADENOCARCINOMA
     Dosage: LAST DOSE PRIOR TO SAE 07/MAR/2013
     Route: 042
  4. CARBOPLATIN [Suspect]
     Indication: OESOPHAGEAL ADENOCARCINOMA
     Dosage: LAST DOSE PRIOR TO SAE 07/MAR/2013, AUC 2
     Route: 042
  5. DEXAMETHASONE [Suspect]
     Indication: PRODUCT USED FOR UNKNOWN INDICATION
     Route: 065
     Dates: start: 20130307

REACTIONS (3)
  - Sudden death [Fatal]
  - Urinary tract infection [Not Recovered/Not Resolved]
  - Confusional state [Not Recovered/Not Resolved]
